FAERS Safety Report 13678877 (Version 1)
Quarter: 2017Q2

REPORT INFORMATION
  Report Type: Spontaneous
  Country: BE (occurrence: BE)
  Receive Date: 20170622
  Receipt Date: 20170622
  Transmission Date: 20170830
  Serious: Yes (Hospitalization, Other)
  Sender: FDA-Public Use
  Company Number: BE-SEBELA IRELAND LIMITED-2017SEB00325

PATIENT
  Age: 86 Year
  Sex: Female

DRUGS (3)
  1. REPAGLINIDE. [Concomitant]
     Active Substance: REPAGLINIDE
     Route: 065
  2. ALLOPURINOL. [Suspect]
     Active Substance: ALLOPURINOL
     Dosage: UNK
     Route: 065
  3. BUMETANIDE. [Concomitant]
     Active Substance: BUMETANIDE
     Route: 065

REACTIONS (4)
  - Drug reaction with eosinophilia and systemic symptoms [Recovered/Resolved]
  - Stevens-Johnson syndrome [Recovered/Resolved]
  - Immune thrombocytopenic purpura [Recovered/Resolved]
  - Chronic kidney disease [Recovered/Resolved]
